FAERS Safety Report 13928755 (Version 1)
Quarter: 2017Q3

REPORT INFORMATION
  Report Type: Spontaneous
  Country: US (occurrence: US)
  Receive Date: 20170901
  Receipt Date: 20170901
  Transmission Date: 20171127
  Serious: No
  Sender: FDA-Public Use
  Company Number: US-LANNETT COMPANY, INC.-US-2017LAN000598

PATIENT

DRUGS (2)
  1. DIGOXIN. [Suspect]
     Active Substance: DIGOXIN
     Indication: PRODUCT USED FOR UNKNOWN INDICATION
     Dosage: 62.5 MCG, QD
  2. DIGOXIN. [Suspect]
     Active Substance: DIGOXIN
     Dosage: 125 MCG, QOD

REACTIONS (2)
  - Therapeutic response increased [Unknown]
  - Feeling abnormal [Unknown]
